FAERS Safety Report 18579358 (Version 2)
Quarter: 2020Q4

REPORT INFORMATION
  Report Type: Spontaneous
  Country: US (occurrence: US)
  Receive Date: 20201204
  Receipt Date: 20201212
  Transmission Date: 20210114
  Serious: Yes (Hospitalization, Other)
  Sender: FDA-Public Use
  Company Number: US-DRREDDYS-USA/USA/20/0129780

PATIENT
  Age: 34 Year
  Sex: Female
  Weight: 92 kg

DRUGS (7)
  1. ESOMEPRAZOLE. [Concomitant]
     Active Substance: ESOMEPRAZOLE MAGNESIUM
     Indication: PRODUCT USED FOR UNKNOWN INDICATION
  2. SUMATRIPTAN SUCCINATE TABLETS [Concomitant]
     Active Substance: SUMATRIPTAN SUCCINATE
     Indication: PRODUCT USED FOR UNKNOWN INDICATION
  3. FENTANYL CITRATE. [Suspect]
     Active Substance: FENTANYL CITRATE
     Indication: INDUCTION AND MAINTENANCE OF ANAESTHESIA
  4. LEVOTHYROXINE SODIUM. [Concomitant]
     Active Substance: LEVOTHYROXINE SODIUM
     Indication: PRODUCT USED FOR UNKNOWN INDICATION
  5. PROPOFOL INJECTABLE EMULSION [Suspect]
     Active Substance: PROPOFOL
     Indication: INDUCTION AND MAINTENANCE OF ANAESTHESIA
     Dosage: ANAESTHESIA WAS MAINTAINED WITH INFUSION OF PROPOFOL AT 250 ?G/KG/MIN
  6. SUCCINYLCHOLINE CHLORIDE. [Suspect]
     Active Substance: SUCCINYLCHOLINE CHLORIDE
     Indication: INDUCTION AND MAINTENANCE OF ANAESTHESIA
  7. LIDOCAINE. [Suspect]
     Active Substance: LIDOCAINE
     Indication: INDUCTION AND MAINTENANCE OF ANAESTHESIA

REACTIONS (1)
  - Rhabdomyolysis [Recovered/Resolved]
